FAERS Safety Report 4503506-X (Version None)
Quarter: 2004Q4

REPORT INFORMATION
  Report Type: 
  Country: None (occurrence: None)
  Receive Date: 20041115
  Receipt Date: 20041104
  Transmission Date: 20050328
  Serious: Yes (Hospitalization)
  Sender: FDA-Public Use
  Company Number: 200410380BFR

PATIENT
  Age: 56 Year
  Sex: Male
  Weight: 75 kg

DRUGS (6)
  1. IZILOX         (MOXIFLOXACIN HYDROCHLORIDE) [Suspect]
     Indication: CHRONIC SINUSITIS
     Dosage: 400 MG, TOTAL DAILY, ORAL
     Route: 048
     Dates: start: 20040705, end: 20040712
  2. IZILOX         (MOXIFLOXACIN HYDROCHLORIDE) [Suspect]
     Indication: INFECTION
     Dosage: 400 MG, TOTAL DAILY, ORAL
     Route: 048
     Dates: start: 20040705, end: 20040712
  3. IZILOX         (MOXIFLOXACIN HYDROCHLORIDE) [Suspect]
     Indication: NASAL POLYPS
     Dosage: 400 MG, TOTAL DAILY, ORAL
     Route: 048
     Dates: start: 20040705, end: 20040712
  4. CELESTENE [Concomitant]
  5. PREDNISOLONE [Concomitant]
  6. OMIX [Concomitant]

REACTIONS (11)
  - ASTHENIA [None]
  - BACTERAEMIA [None]
  - DRUG INEFFECTIVE [None]
  - EAR CANAL ERYTHEMA [None]
  - EAR PAIN [None]
  - HYPERHIDROSIS [None]
  - MUCOSAL MEMBRANE HYPERPLASIA [None]
  - MYALGIA [None]
  - PYREXIA [None]
  - SINUS DISORDER [None]
  - TREMOR [None]
